FAERS Safety Report 19745587 (Version 2)
Quarter: 2021Q3

REPORT INFORMATION
  Report Type: Report from Study
  Country: IT (occurrence: IT)
  Receive Date: 20210825
  Receipt Date: 20210906
  Transmission Date: 20211014
  Serious: No
  Sender: FDA-Public Use
  Company Number: IT-ROCHE-2878530

PATIENT
  Age: 47 Year
  Sex: Female
  Weight: 70 kg

DRUGS (14)
  1. DEXAMETASONE [Concomitant]
     Active Substance: DEXAMETHASONE
     Indication: NAUSEA
     Route: 042
     Dates: start: 20210623, end: 20210626
  2. ATEZOLIZUMAB. [Suspect]
     Active Substance: ATEZOLIZUMAB
     Indication: NON-SMALL CELL LUNG CANCER METASTATIC
     Dosage: START DATE OF MOST RECENT DOSE (1200 MG) OF ATEZOLIZUMAB PRIOR TO AE: 02/JUL/2021
     Route: 041
     Dates: start: 20210518
  3. DEXAMETASONE [Concomitant]
     Active Substance: DEXAMETHASONE
     Indication: VOMITING
  4. METOCLOPRAMIDE. [Concomitant]
     Active Substance: METOCLOPRAMIDE
     Indication: NAUSEA
     Dates: start: 20210623, end: 20210626
  5. DENOSUMAB [Concomitant]
     Active Substance: DENOSUMAB
     Indication: METASTASES TO BONE
     Dates: start: 20210624, end: 20210624
  6. PARACETAMOL+CODEIN [Concomitant]
     Active Substance: ACETAMINOPHEN\CODEINE PHOSPHATE
     Indication: BACK PAIN
     Dates: start: 20210510, end: 20210802
  7. METOCLOPRAMIDE. [Concomitant]
     Active Substance: METOCLOPRAMIDE
     Indication: VOMITING
  8. DENOSUMAB [Concomitant]
     Active Substance: DENOSUMAB
     Dates: start: 20210722, end: 20210722
  9. BONECAL [Concomitant]
     Indication: METASTASES TO BONE
     Dates: start: 20210608, end: 20210802
  10. DEXAMETASONE [Concomitant]
     Active Substance: DEXAMETHASONE
     Indication: ASTHENIA
  11. ITRACONAZOLE. [Concomitant]
     Active Substance: ITRACONAZOLE
     Indication: STOMATITIS
     Dates: start: 20210705, end: 20210716
  12. CABOZANTINIB [Suspect]
     Active Substance: CABOZANTINIB
     Indication: NON-SMALL CELL LUNG CANCER METASTATIC
     Dosage: START DATE OF MOST RECENT DOSE (40 MG) OF STUDY DRUG PRIOR TO AE:  23/JUL/2021?ON DAYS 1?21 OF EACH
     Route: 048
     Dates: start: 20210518
  13. LEVOTHYROXINE SODIUM. [Concomitant]
     Active Substance: LEVOTHYROXINE SODIUM
     Indication: HYPOTHYROIDISM
     Dates: start: 2018
  14. ASCORBIC ACID. [Concomitant]
     Active Substance: ASCORBIC ACID
     Indication: ASTHENIA
     Dates: start: 20210623, end: 20210626

REACTIONS (1)
  - Drug-induced liver injury [Recovered/Resolved]

NARRATIVE: CASE EVENT DATE: 20210723
